FAERS Safety Report 8331546-1 (Version None)
Quarter: 2012Q2

REPORT INFORMATION
  Report Type: 
  Country: None (occurrence: None)
  Receive Date: 20120502
  Receipt Date: 20120419
  Transmission Date: 20120825
  Serious: No
  Sender: FDA-Public Use
  Company Number: US-AMGEN-USASP2012024761

PATIENT
  Age: 54 Year
  Sex: Male

DRUGS (1)
  1. ENBREL [Suspect]
     Indication: RHEUMATOID ARTHRITIS
     Dosage: 50 MG, QWK
     Dates: start: 20041001

REACTIONS (8)
  - ALLERGY TO ANIMAL [None]
  - INJECTION SITE MASS [None]
  - INJECTION SITE ERYTHEMA [None]
  - NASAL CONGESTION [None]
  - INJECTION SITE SWELLING [None]
  - LACRIMATION INCREASED [None]
  - SNEEZING [None]
  - HYPERSENSITIVITY [None]
